FAERS Safety Report 8821376 (Version 1)
Quarter: 2012Q4

REPORT INFORMATION
  Report Type: 
  Country: US (occurrence: US)
  Receive Date: 20121002
  Receipt Date: 20121002
  Transmission Date: 20130627
  Serious: Yes (Other)
  Sender: FDA-Public Use
  Company Number: US-ELI_LILLY_AND_COMPANY-US201209006200

PATIENT
  Age: 39 Year
  Sex: Male

DRUGS (5)
  1. STRATTERA [Suspect]
     Dosage: 100 mg, UNK
  2. NEXIUM [Concomitant]
  3. GLUCOPHAGE [Concomitant]
  4. ACTOS [Concomitant]
  5. DIOVAN HCT [Concomitant]

REACTIONS (1)
  - Gastrectomy [Unknown]
